FAERS Safety Report 10476723 (Version 1)
Quarter: 2014Q3

REPORT INFORMATION
  Report Type: Spontaneous
  Country: US (occurrence: US)
  Receive Date: 20140925
  Receipt Date: 20140925
  Transmission Date: 20150326
  Serious: Yes (Hospitalization)
  Sender: FDA-Public Use
  Company Number: PHHY2014US123763

PATIENT
  Age: 18 Year
  Sex: Female

DRUGS (1)
  1. DEFEROXAMINE [Suspect]
     Active Substance: DEFEROXAMINE\DEFEROXAMINE MESYLATE
     Indication: SICKLE CELL ANAEMIA
     Route: 042

REACTIONS (9)
  - Infection [Unknown]
  - Septic shock [Recovering/Resolving]
  - Pyrexia [Unknown]
  - Nocardia sepsis [Recovering/Resolving]
  - Cough [Unknown]
  - Nocardiosis [Unknown]
  - Acute respiratory distress syndrome [Recovering/Resolving]
  - Chest pain [Unknown]
  - Sensory disturbance [Unknown]
